FAERS Safety Report 5024693-3 (Version None)
Quarter: 2006Q2

REPORT INFORMATION
  Report Type: 
  Country: None (occurrence: None)
  Receive Date: 20060426
  Receipt Date: 20060307
  Transmission Date: 20061013
  Serious: Yes (Other)
  Sender: FDA-Public Use
  Company Number: 2006034893

PATIENT
  Age: 75 Year
  Sex: Female

DRUGS (4)
  1. LYRICA [Suspect]
     Indication: NEURALGIA
     Dates: start: 20051201, end: 20060305
  2. LEXAPRO [Concomitant]
  3. LIPITOR [Concomitant]
  4. TOPROL-XL [Concomitant]

REACTIONS (5)
  - DIFFICULTY IN WALKING [None]
  - DISORIENTATION [None]
  - INSOMNIA [None]
  - PRURITUS [None]
  - RESTLESSNESS [None]
